FAERS Safety Report 19908941 (Version 8)
Quarter: 2021Q4

REPORT INFORMATION
  Report Type: Report from Study
  Country: PT (occurrence: PT)
  Receive Date: 20211002
  Receipt Date: 20211216
  Transmission Date: 20220303
  Serious: Yes (Hospitalization)
  Sender: FDA-Public Use
  Company Number: PT-ABBVIE-21K-130-4103706-00

PATIENT
  Age: 76 Year
  Sex: Male

DRUGS (6)
  1. CARBIDOPA\LEVODOPA [Suspect]
     Active Substance: CARBIDOPA\LEVODOPA
     Indication: Parkinson^s disease
     Dosage: 20 MG + 5 MG, MORN:12CC;MAINT:3.5CC/H;EXTRA:1CC
     Route: 050
     Dates: start: 20210921, end: 2021
  2. CARBIDOPA\LEVODOPA [Suspect]
     Active Substance: CARBIDOPA\LEVODOPA
     Dosage: MORN:14.5CC;MAINT:4.4CC/H;EXTRA:1CC
     Route: 050
     Dates: start: 2021, end: 2021
  3. CARBIDOPA\LEVODOPA [Suspect]
     Active Substance: CARBIDOPA\LEVODOPA
     Dosage: MORN:15CC;MAINT:4.7CC/H;EXTRA:1CC?20 MG + 5 MG
     Route: 050
     Dates: start: 2021
  4. OPICAPONE [Concomitant]
     Active Substance: OPICAPONE
     Indication: Product used for unknown indication
     Dosage: 1+1/2 TABLET AT 9H, 13H AND 17H?BEFORE DUODOPA
  5. RIVOTRIL [Concomitant]
     Active Substance: CLONAZEPAM
     Indication: Product used for unknown indication
     Dosage: 1+1/2 TABLET AT 9H, 13H AND 17H?BEFORE DUODOPA
  6. BENSERAZIDE HYDROCHLORIDE\LEVODOPA [Concomitant]
     Active Substance: BENSERAZIDE HYDROCHLORIDE\LEVODOPA
     Indication: Product used for unknown indication
     Dosage: AT 9PM?BEFORE DUODOPA
     Dates: start: 202109, end: 202110

REACTIONS (9)
  - C-reactive protein increased [Unknown]
  - Red blood cell sedimentation rate decreased [Unknown]
  - Staphylococcus test positive [Unknown]
  - Haemoglobin decreased [Unknown]
  - Haematocrit decreased [Unknown]
  - Pyrexia [Recovered/Resolved]
  - Stoma site inflammation [Recovered/Resolved]
  - Stoma site discharge [Recovered/Resolved]
  - Granuloma [Recovered/Resolved]

NARRATIVE: CASE EVENT DATE: 20210901
